APPROVED DRUG PRODUCT: KUVAN
Active Ingredient: SAPROPTERIN DIHYDROCHLORIDE
Strength: 500MG/PACKET
Dosage Form/Route: POWDER;ORAL
Application: N205065 | Product #002 | TE Code: AB
Applicant: BIOMARIN PHARMACEUTICAL INC
Approved: Oct 27, 2015 | RLD: Yes | RS: Yes | Type: RX

PATENTS:
Patent 9216178 | Expires: Nov 1, 2032
Patent 9216178*PED | Expires: May 1, 2033